FAERS Safety Report 21830785 (Version 2)
Quarter: 2023Q1

REPORT INFORMATION
  Report Type: Spontaneous
  Country: JP (occurrence: JP)
  Receive Date: 20230106
  Receipt Date: 20230206
  Transmission Date: 20230418
  Serious: Yes (Death, Other)
  Sender: FDA-Public Use
  Company Number: JP-PFIZER INC-PV202300002764

PATIENT
  Age: 85 Year
  Sex: Male
  Weight: 44.5 kg

DRUGS (1)
  1. PAXLOVID [Suspect]
     Active Substance: NIRMATRELVIR\RITONAVIR
     Indication: COVID-19 treatment
     Dosage: UNK, 2X/DAY
     Route: 048
     Dates: start: 20230102

REACTIONS (3)
  - Cardiac failure [Fatal]
  - Respiratory arrest [Unknown]
  - Dementia [Unknown]

NARRATIVE: CASE EVENT DATE: 20230102
